FAERS Safety Report 8256813-1 (Version None)
Quarter: 2012Q2

REPORT INFORMATION
  Report Type: 
  Country: None (occurrence: None)
  Receive Date: 20120403
  Receipt Date: 20120322
  Transmission Date: 20120825
  Serious: Yes (Life-Threatening, Hospitalization, Other)
  Sender: FDA-Public Use
  Company Number: GB-BAYER-2012-027785

PATIENT
  Age: 36 Year
  Sex: Male

DRUGS (4)
  1. EPHEDRINE SULFATE + GUAIFENESIN +/- CROSCARMELLOSE SODIUM [Interacting]
     Dosage: 60 MG, ONCE
     Route: 048
  2. CAFFEINE [Interacting]
     Dosage: 240 MG, ONCE
     Route: 048
  3. ASPIRIN [Suspect]
     Dosage: 60 MG, ONCE
     Route: 048
  4. NARNEGIN (NARINGIN?) / BIOFLAVONOID DERIVED FROM GRAPEFRUIT [Concomitant]
     Dosage: 160 MG, ONCE
     Route: 048

REACTIONS (13)
  - COMA SCALE ABNORMAL [None]
  - HYPERHIDROSIS [None]
  - CONVULSION [None]
  - LACTIC ACIDOSIS [None]
  - RHABDOMYOLYSIS [None]
  - RENAL FAILURE ACUTE [None]
  - BODY TEMPERATURE INCREASED [None]
  - HYPOXIA [None]
  - MYDRIASIS [None]
  - HYPOGLYCAEMIA [None]
  - CIRCULATORY COLLAPSE [None]
  - AGITATION [None]
  - TACHYCARDIA [None]
